FAERS Safety Report 8282144-X (Version None)
Quarter: 2012Q2

REPORT INFORMATION
  Report Type: 
  Country: None (occurrence: None)
  Receive Date: 20120413
  Receipt Date: 20120405
  Transmission Date: 20120825
  Serious: Yes (Hospitalization, Other)
  Sender: FDA-Public Use
  Company Number: PHHO2012NL002291

PATIENT
  Sex: Male
  Weight: 78 kg

DRUGS (19)
  1. MYFORTIC [Suspect]
     Dosage: NO TREATMENT RECEIVED
     Dates: start: 20120212, end: 20120221
  2. LIPITOR [Concomitant]
     Indication: BLOOD CHOLESTEROL INCREASED
     Dosage: 10 MG, QD
     Dates: start: 20110713
  3. NEXIUM [Concomitant]
     Indication: PROPHYLAXIS
     Dosage: 40 MG, QD
     Dates: start: 20110713
  4. PREDNISOLONE [Suspect]
     Indication: RENAL TRANSPLANT
     Dosage: 10 MG, BID
     Route: 048
     Dates: start: 20110713, end: 20120211
  5. MONO-CEDOCARD [Concomitant]
     Indication: HYPERTENSION
     Dosage: 50 MG, QD
     Dates: start: 20110717
  6. NEORAL [Suspect]
     Dosage: NO TREATMENT RECEIVED
     Dates: start: 20120212, end: 20120221
  7. MYFORTIC [Suspect]
     Dosage: UNK
     Route: 048
     Dates: start: 20120222
  8. PREDNISOLONE [Suspect]
     Dosage: NO TREATMENT RECEIVED
     Dates: start: 20120212, end: 20120221
  9. ENALAPRIL MALEATE [Concomitant]
  10. NEORAL [Suspect]
     Dosage: UNK
     Route: 048
     Dates: start: 20120222
  11. VALCYTE [Concomitant]
     Indication: PROPHYLAXIS
     Dosage: 1X450UNK
     Dates: start: 20110714
  12. NEORAL [Suspect]
     Indication: RENAL TRANSPLANT
     Dosage: 175 MG, BID
     Route: 048
     Dates: start: 20110805, end: 20120211
  13. AMLODIPINE [Concomitant]
     Indication: RESPIRATORY RATE INCREASED
     Dosage: 1X10
     Dates: start: 20110810
  14. ETALPHA [Concomitant]
     Dosage: 0.25 MG, QD
     Dates: start: 20110722
  15. CALCIUM CARBONATE [Concomitant]
     Indication: BONE DISORDER
     Dosage: UNK
     Dates: start: 20110810
  16. MYFORTIC [Suspect]
     Indication: RENAL TRANSPLANT
     Dosage: 360 MG, BID
     Route: 048
     Dates: start: 20110713, end: 20120211
  17. PREDNISOLONE [Suspect]
     Dosage: UNK
     Dates: start: 20120222
  18. FUROSEMIDE [Concomitant]
     Indication: DIURETIC THERAPY
     Dosage: 500 MG, QD
     Dates: start: 20110718
  19. CALCI [Concomitant]
     Indication: MINERAL SUPPLEMENTATION
     Dosage: 500 MG, QD
     Dates: start: 20110722

REACTIONS (9)
  - HYDRONEPHROSIS [None]
  - ORTHOSTATIC HYPERTENSION [None]
  - PYELONEPHRITIS [None]
  - HYPERTENSION [None]
  - THROMBOCYTOPENIA [None]
  - ESCHERICHIA URINARY TRACT INFECTION [None]
  - OEDEMA PERIPHERAL [None]
  - LEUKOPENIA [None]
  - URETERIC STENOSIS [None]
